FAERS Safety Report 4584223-7 (Version None)
Quarter: 2005Q1

REPORT INFORMATION
  Report Type: 
  Country: None (occurrence: None)
  Receive Date: 20050125
  Receipt Date: 20041027
  Transmission Date: 20050727
  Serious: No
  Sender: FDA-Public Use
  Company Number: USA041082516

PATIENT
  Age: 71 Year
  Sex: Female

DRUGS (6)
  1. FORTEO [Suspect]
     Indication: OSTEOPOROSIS
     Dates: start: 20040206
  2. EVISTA [Concomitant]
  3. ARM0UR THYROID (THYROID) [Concomitant]
  4. VICODIN [Concomitant]
  5. CALCIUM GLUCONATE [Concomitant]
  6. ACIPHEX [Concomitant]

REACTIONS (1)
  - BONE DENSITY DECREASED [None]
